FAERS Safety Report 14838731 (Version 1)
Quarter: 2018Q2

REPORT INFORMATION
  Report Type: Report from Study
  Country: US (occurrence: US)
  Receive Date: 20180502
  Receipt Date: 20180502
  Transmission Date: 20180711
  Serious: Yes (Other)
  Sender: FDA-Public Use
  Company Number: US-APOPHARMA-2018AP011263

PATIENT
  Sex: Male
  Weight: 28 kg

DRUGS (3)
  1. FERRIPROX [Suspect]
     Active Substance: DEFERIPRONE
     Indication: THALASSAEMIA
     Dosage: 27 MG/KG, TID
     Route: 048
     Dates: start: 20160629
  2. FERRIPROX [Suspect]
     Active Substance: DEFERIPRONE
     Dosage: 27 MG/KG, TID
     Route: 048
  3. FERRIPROX [Suspect]
     Active Substance: DEFERIPRONE
     Indication: HAEMOCHROMATOSIS
     Dosage: 36 MG/KG, TID
     Route: 048

REACTIONS (1)
  - White blood cell count decreased [Recovered/Resolved]
